FAERS Safety Report 4703599-0 (Version None)
Quarter: 2005Q2

REPORT INFORMATION
  Report Type: 
  Country: None (occurrence: None)
  Receive Date: 20050630
  Receipt Date: 20050524
  Transmission Date: 20051028
  Serious: Yes (Hospitalization)
  Sender: FDA-Public Use
  Company Number: US-ABBOTT-05P-163-0301317-00

PATIENT
  Sex: Male
  Weight: 75.818 kg

DRUGS (18)
  1. HUMIRA [Suspect]
     Indication: RHEUMATOID ARTHRITIS
     Route: 058
     Dates: start: 20030101, end: 20050506
  2. HUMULIN 70/30 [Concomitant]
     Indication: DIABETES MELLITUS
     Route: 058
  3. INSULIN [Concomitant]
     Indication: DIABETES MELLITUS
     Route: 058
  4. N INSULIN [Concomitant]
     Indication: DIABETES MELLITUS
     Route: 058
  5. DOXAZOSIN MESYLATE [Concomitant]
     Indication: CARDIAC DISORDER
     Route: 048
  6. WARFARIN SODIUM [Concomitant]
     Indication: CARDIAC DISORDER
     Route: 048
  7. VALSARTAN [Concomitant]
     Indication: DRUG USE FOR UNKNOWN INDICATION
     Route: 048
  8. FOLIC ACID [Concomitant]
     Indication: RHEUMATOID ARTHRITIS
     Route: 048
  9. FUROSEMIDE [Concomitant]
     Indication: SWELLING
     Dosage: 40 TO 80 MG
     Route: 048
  10. FERROUS SULFATE [Concomitant]
     Indication: MINERAL SUPPLEMENTATION
     Route: 048
  11. ISOSORB [Concomitant]
     Indication: DRUG USE FOR UNKNOWN INDICATION
     Route: 048
  12. LEXAPRO [Concomitant]
     Indication: DEPRESSION
     Route: 048
  13. PREDNISONE TAB [Concomitant]
     Indication: RHEUMATOID ARTHRITIS
     Route: 048
  14. QUININE SULFATE [Concomitant]
     Indication: MUSCLE SPASMS
     Route: 048
  15. RANITIDINE HYDROCHLORIDE [Concomitant]
     Indication: GASTRIC DISORDER
     Route: 048
  16. SODIUM BICARBONATE [Concomitant]
     Indication: DRUG USE FOR UNKNOWN INDICATION
     Route: 048
  17. TRENTAL [Concomitant]
     Indication: DRUG USE FOR UNKNOWN INDICATION
     Route: 048
  18. EPOETIN ALFA [Concomitant]
     Indication: ANAEMIA
     Route: 050

REACTIONS (5)
  - FALL [None]
  - HIP FRACTURE [None]
  - LOCALISED INFECTION [None]
  - STAPHYLOCOCCAL INFECTION [None]
  - UPPER LIMB FRACTURE [None]
